FAERS Safety Report 17019832 (Version 3)
Quarter: 2019Q4

REPORT INFORMATION
  Report Type: Report from Study
  Country: DE (occurrence: DE)
  Receive Date: 20191112
  Receipt Date: 20191212
  Transmission Date: 20200122
  Serious: Yes (Other)
  Sender: FDA-Public Use
  Company Number: NVSC2019DE029672

PATIENT
  Sex: Female

DRUGS (7)
  1. GILENYA [Suspect]
     Active Substance: FINGOLIMOD HYDROCHLORIDE
     Indication: MULTIPLE SCLEROSIS
     Dosage: 0.5 MG, QD
     Route: 048
     Dates: start: 20190211
  2. AMBROHEXAL [Concomitant]
     Active Substance: AMBROXOL HYDROCHLORIDE
     Indication: INFECTION
     Dosage: 25.5 MG
     Route: 065
     Dates: start: 20190823
  3. NAPROXEN. [Concomitant]
     Active Substance: NAPROXEN
     Indication: BACK PAIN
     Dosage: 250 ML
     Route: 065
     Dates: start: 20080317
  4. VITAMIN B12 [Concomitant]
     Active Substance: CYANOCOBALAMIN
     Indication: VITAMIN B12 DEFICIENCY
     Dosage: 100 UG, Q3W
     Route: 065
     Dates: start: 20040427
  5. BACLOFEN. [Concomitant]
     Active Substance: BACLOFEN
     Indication: INFECTION
     Dosage: 25 MG
     Route: 065
     Dates: start: 20190830
  6. GELOMYRTOL [Concomitant]
     Indication: INFECTION
     Dosage: UNK
     Route: 065
     Dates: start: 20190830
  7. IBUPROFEN. [Concomitant]
     Active Substance: IBUPROFEN
     Indication: BACK PAIN
     Dosage: 600 MG
     Route: 065
     Dates: start: 20180613

REACTIONS (1)
  - Circulatory collapse [Recovered/Resolved]

NARRATIVE: CASE EVENT DATE: 20191007
